FAERS Safety Report 10248956 (Version 1)
Quarter: 2014Q2

REPORT INFORMATION
  Report Type: Report from Study
  Country: JP (occurrence: JP)
  Receive Date: 20140620
  Receipt Date: 20140620
  Transmission Date: 20141212
  Serious: Yes (Other)
  Sender: FDA-Public Use
  Company Number: JP-SA-2014SA080975

PATIENT
  Age: 71 Year
  Sex: Male
  Weight: 60 kg

DRUGS (9)
  1. CABAZITAXEL [Suspect]
     Indication: PROSTATE CANCER METASTATIC
     Route: 042
     Dates: start: 20121030, end: 20121030
  2. PREDNISOLONE [Suspect]
     Indication: PROSTATE CANCER METASTATIC
     Route: 048
     Dates: start: 20121023, end: 20121120
  3. TAKEPRON OD [Concomitant]
     Indication: GASTRITIS
     Route: 048
     Dates: start: 20110426
  4. GASLON [Concomitant]
     Indication: GASTRITIS
     Route: 048
     Dates: start: 20110426
  5. BAYASPIRIN [Concomitant]
     Indication: THROMBOSIS PROPHYLAXIS
     Route: 048
     Dates: start: 20070404
  6. XALATAN [Concomitant]
     Indication: GLAUCOMA
     Dosage: ADEQUATE DOSE QD
     Route: 047
     Dates: start: 20070404
  7. BETAMETHASONE SODIUM PHOSPHATE [Concomitant]
     Indication: GLAUCOMA
     Dosage: ADEQUATE DOSE BID
     Route: 047
     Dates: start: 2007
  8. CRAVIT [Concomitant]
     Indication: GLAUCOMA
     Dosage: ADEQUATE DOSE BID
     Route: 047
     Dates: start: 2007
  9. ZOMETA [Concomitant]
     Indication: METASTASES TO BONE
     Dosage: 4MG AT A TIME
     Route: 042
     Dates: start: 20120624

REACTIONS (1)
  - Alanine aminotransferase increased [Recovered/Resolved]
